FAERS Safety Report 7050580-5 (Version None)
Quarter: 2010Q4

REPORT INFORMATION
  Report Type: 
  Country: None (occurrence: None)
  Receive Date: 20101018
  Receipt Date: 20101005
  Transmission Date: 20110411
  Serious: Yes (Hospitalization)
  Sender: FDA-Public Use
  Company Number: TR-ELI_LILLY_AND_COMPANY-TR201010001272

PATIENT

DRUGS (4)
  1. HUMULIN N [Suspect]
     Indication: DIABETES MELLITUS
     Dosage: 12 U, DAILY (1/D)
     Route: 064
  2. NOVORAPID [Concomitant]
     Indication: DIABETES MELLITUS
     Dosage: 14 U, 3/D
     Route: 064
  3. ALFAMET [Concomitant]
     Indication: HYPERTENSION
     Dosage: UNK UNK, DAILY (1/D)
     Route: 064
  4. FERRO SANOL [Concomitant]
     Dosage: UNK UNK, DAILY (1/D)
     Route: 064

REACTIONS (3)
  - DRUG EXPOSURE DURING PREGNANCY [None]
  - PREMATURE BABY [None]
  - SMALL FOR DATES BABY [None]
